FAERS Safety Report 23701154 (Version 2)
Quarter: 2024Q2

REPORT INFORMATION
  Report Type: Report from Study
  Country: SK (occurrence: SK)
  Receive Date: 20240403
  Receipt Date: 20240515
  Transmission Date: 20240716
  Serious: Yes (Other)
  Sender: FDA-Public Use
  Company Number: SK-CLINIGEN-SK-CLI-2023-033184

PATIENT

DRUGS (18)
  1. FOSCAVIR [Suspect]
     Active Substance: FOSCARNET SODIUM
     Indication: Cytomegalovirus viraemia
     Dosage: 3000 MILLIGRAM, Q8H
     Route: 042
     Dates: start: 20221112, end: 20221201
  2. FOSCAVIR [Suspect]
     Active Substance: FOSCARNET SODIUM
     Dosage: 3000 MILLIGRAM, Q12H
     Route: 042
     Dates: start: 20221210, end: 20221219
  3. FOSCAVIR [Suspect]
     Active Substance: FOSCARNET SODIUM
     Dosage: 3000 MILLIGRAM, Q8H
     Route: 042
     Dates: start: 20230102, end: 20230117
  4. FOSCAVIR [Suspect]
     Active Substance: FOSCARNET SODIUM
     Dosage: 3000 MILLIGRAM, Q12H
     Route: 042
     Dates: start: 20230531, end: 20230609
  5. FOSCAVIR [Suspect]
     Active Substance: FOSCARNET SODIUM
     Dosage: 3000 MILLIGRAM, Q12H
     Route: 042
     Dates: start: 20230619, end: 20230623
  6. FOSCAVIR [Suspect]
     Active Substance: FOSCARNET SODIUM
     Dosage: 3000 MILLIGRAM, Q12H
     Route: 042
     Dates: start: 20230627, end: 20230709
  7. FOSCAVIR [Suspect]
     Active Substance: FOSCARNET SODIUM
     Dosage: 3000 MILLIGRAM, Q12H
     Route: 042
     Dates: start: 20230802, end: 20230815
  8. FOSCAVIR [Suspect]
     Active Substance: FOSCARNET SODIUM
     Dosage: 3000 MG, Q12H
     Route: 042
     Dates: start: 20230821, end: 20230903
  9. GANCICLOVIR [Concomitant]
     Active Substance: GANCICLOVIR
     Indication: Cytomegalovirus colitis
     Dosage: 300 MILLIGRAM, Q12H
     Route: 042
     Dates: start: 20221028, end: 20221107
  10. GANCICLOVIR [Concomitant]
     Active Substance: GANCICLOVIR
     Indication: Cytomegalovirus hepatitis
     Dosage: 250 MILLIGRAM, Q12H
     Route: 042
     Dates: start: 20230127, end: 20230208
  11. GANCICLOVIR [Concomitant]
     Active Substance: GANCICLOVIR
     Dosage: 250 MILLIGRAM, Q12H
     Route: 042
     Dates: start: 20230413, end: 20230421
  12. LETERMOVIR [Concomitant]
     Active Substance: LETERMOVIR
     Indication: Cytomegalovirus viraemia
     Dosage: 240 MILLIGRAM, QD
     Route: 048
     Dates: start: 20230209, end: 20230412
  13. LETERMOVIR [Concomitant]
     Active Substance: LETERMOVIR
     Indication: Cytomegalovirus colitis
     Dosage: 240 MILLIGRAM, QD
     Route: 048
     Dates: start: 20230517, end: 20230530
  14. LETERMOVIR [Concomitant]
     Active Substance: LETERMOVIR
     Indication: Prophylaxis
     Dosage: 240 MILLIGRAM, QD
     Route: 048
     Dates: start: 20230710, end: 20230802
  15. LETERMOVIR [Concomitant]
     Active Substance: LETERMOVIR
     Dosage: 240 MG, QD
     Route: 048
  16. VALACYCLOVIR HYDROCHLORIDE [Concomitant]
     Active Substance: VALACYCLOVIR HYDROCHLORIDE
     Indication: Prophylaxis
  17. HUMAN CYTOMEGALOVIRUS IMMUNE GLOBULIN [Concomitant]
     Active Substance: HUMAN CYTOMEGALOVIRUS IMMUNE GLOBULIN
     Indication: Cytomegalovirus hepatitis
  18. CIDOFOVIR [Concomitant]
     Active Substance: CIDOFOVIR
     Indication: Cytomegalovirus viraemia

REACTIONS (10)
  - Neurotoxicity [Unknown]
  - Circulatory collapse [Unknown]
  - Seizure [Unknown]
  - Pancytopenia [Unknown]
  - Psychiatric symptom [Unknown]
  - Paresis [Unknown]
  - Muscle spasms [Unknown]
  - Electrolyte imbalance [Unknown]
  - Paraesthesia [Unknown]
  - Confusional state [Unknown]

NARRATIVE: CASE EVENT DATE: 20221207
